FAERS Safety Report 9782783 (Version 1)
Quarter: 2013Q4

REPORT INFORMATION
  Report Type: Spontaneous
  Country: US (occurrence: US)
  Receive Date: 20131226
  Receipt Date: 20131226
  Transmission Date: 20140711
  Serious: No
  Sender: FDA-Public Use
  Company Number: US-ABBVIE-13P-163-1073410-00

PATIENT
  Sex: Male
  Weight: 68.1 kg

DRUGS (4)
  1. LUPRON DEPOT [Suspect]
     Indication: PROSTATE CANCER
     Dates: start: 201201, end: 201301
  2. UNKNOWN CHOLESTEROL MEDICATION [Concomitant]
     Indication: BLOOD CHOLESTEROL INCREASED
  3. CALCIUM [Concomitant]
     Indication: BONE DISORDER
  4. CALCIUM [Concomitant]
     Indication: PROPHYLAXIS

REACTIONS (12)
  - Sexual dysfunction [Not Recovered/Not Resolved]
  - Bone pain [Unknown]
  - Mobility decreased [Not Recovered/Not Resolved]
  - Anxiety [Recovering/Resolving]
  - Testicular atrophy [Not Recovered/Not Resolved]
  - Insomnia [Recovering/Resolving]
  - Libido decreased [Not Recovered/Not Resolved]
  - Erectile dysfunction [Not Recovered/Not Resolved]
  - Pain in extremity [Not Recovered/Not Resolved]
  - Hypoaesthesia [Not Recovered/Not Resolved]
  - Paraesthesia [Not Recovered/Not Resolved]
  - Hot flush [Not Recovered/Not Resolved]
